FAERS Safety Report 21081779 (Version 2)
Quarter: 2022Q3

REPORT INFORMATION
  Report Type: Spontaneous
  Country: US (occurrence: US)
  Receive Date: 20220714
  Receipt Date: 20220723
  Transmission Date: 20221026
  Serious: No
  Sender: FDA-Public Use
  Company Number: US-UNITED THERAPEUTICS-UNT-2022-009693

PATIENT
  Age: 71 Year
  Sex: Female
  Weight: 45.351 kg

DRUGS (6)
  1. REMODULIN [Suspect]
     Active Substance: TREPROSTINIL
     Indication: Pulmonary arterial hypertension
     Dosage: UNK, CONTINUING
     Route: 058
     Dates: start: 20201210
  2. REMODULIN [Suspect]
     Active Substance: TREPROSTINIL
     Dosage: 0.080 ?G/KG, CONTINUING
     Route: 058
  3. REMODULIN [Suspect]
     Active Substance: TREPROSTINIL
     Dosage: 0.095 ?G/KG, CONTINUING
     Route: 058
  4. REMODULIN [Suspect]
     Active Substance: TREPROSTINIL
     Dosage: UNK, CONTINUING
     Route: 058
  5. ADEMPAS [Concomitant]
     Active Substance: RIOCIGUAT
     Indication: Product used for unknown indication
     Dosage: UNK
     Route: 065
  6. AMBRISENTAN [Concomitant]
     Active Substance: AMBRISENTAN
     Indication: Product used for unknown indication
     Dosage: UNK
     Route: 065

REACTIONS (7)
  - Infusion site swelling [Not Recovered/Not Resolved]
  - Infusion site erythema [Unknown]
  - Infusion site pain [Unknown]
  - Infusion site warmth [Unknown]
  - Infusion site reaction [Unknown]
  - Peripheral swelling [Unknown]
  - Infusion site infection [Unknown]

NARRATIVE: CASE EVENT DATE: 20220501
